FAERS Safety Report 21221600 (Version 1)
Quarter: 2022Q3

REPORT INFORMATION
  Report Type: Spontaneous
  Country: CN (occurrence: None)
  Receive Date: 20220817
  Receipt Date: 20220817
  Transmission Date: 20221027
  Serious: Yes (Other)
  Sender: FDA-Public Use
  Company Number: CN-ROCHE-3157340

PATIENT
  Age: 31 Year
  Sex: Female
  Weight: 43 kg

DRUGS (8)
  1. AVASTIN [Suspect]
     Active Substance: BEVACIZUMAB
     Indication: Rectal cancer
     Dosage: TREATMENT WITH XELOX FOR TWICE
     Route: 065
  2. AVASTIN [Suspect]
     Active Substance: BEVACIZUMAB
     Dosage: TREATMENT WITH XELOX AND CAMRELIZUMAB FOR TWICE
     Route: 065
  3. CAPECITABINE [Concomitant]
     Active Substance: CAPECITABINE
     Indication: Rectal cancer
  4. OXALIPLATIN [Concomitant]
     Active Substance: OXALIPLATIN
     Indication: Rectal cancer
  5. CAMRELIZUMAB [Concomitant]
     Active Substance: CAMRELIZUMAB
     Indication: Rectal cancer
  6. REGORAFENIB [Concomitant]
     Active Substance: REGORAFENIB
     Indication: Rectal cancer
  7. VEMURAFENIB [Concomitant]
     Active Substance: VEMURAFENIB
     Indication: Rectal cancer
  8. CETUXIMAB [Concomitant]
     Active Substance: CETUXIMAB
     Indication: Rectal cancer

REACTIONS (3)
  - Myelosuppression [Unknown]
  - Rash [Unknown]
  - Hyperpyrexia [Unknown]
